FAERS Safety Report 7473508-2 (Version None)
Quarter: 2011Q2

REPORT INFORMATION
  Report Type: 
  Country: None (occurrence: None)
  Receive Date: 20110511
  Receipt Date: 20110503
  Transmission Date: 20111010
  Serious: Yes (Death, Other)
  Sender: FDA-Public Use
  Company Number: US-PFIZER INC-2011095025

PATIENT
  Age: 65 Year
  Sex: Female

DRUGS (4)
  1. PRISTIQ [Suspect]
     Indication: DEPRESSION
     Dosage: 50MG, UNK
     Dates: start: 20110401
  2. LYRICA [Suspect]
     Indication: NEURALGIA
     Dosage: UNKNOWN DOSE
  3. LYRICA [Suspect]
     Dosage: 300 MG, 1X/DAY
     Dates: start: 20110401
  4. LYRICA [Suspect]
     Dosage: 150 MG, 1X/DAY

REACTIONS (2)
  - DEPRESSION [None]
  - COMPLETED SUICIDE [None]
